FAERS Safety Report 10158625 (Version 1)
Quarter: 2014Q2

REPORT INFORMATION
  Report Type: Spontaneous
  Country: CA (occurrence: CA)
  Receive Date: 20140508
  Receipt Date: 20140508
  Transmission Date: 20141212
  Serious: Yes (Other)
  Sender: FDA-Public Use
  Company Number: CA-009507513-1405CAN003548

PATIENT
  Sex: Female

DRUGS (1)
  1. NITRO-DUR [Suspect]
     Dosage: 1 EVERY 12 HOURS
     Route: 065

REACTIONS (2)
  - Dyspnoea [Recovered/Resolved]
  - Product substitution issue [Unknown]
